FAERS Safety Report 14787349 (Version 2)
Quarter: 2018Q2

REPORT INFORMATION
  Report Type: Spontaneous
  Country: MA (occurrence: MA)
  Receive Date: 20180421
  Receipt Date: 20180511
  Transmission Date: 20180711
  Serious: Yes (Hospitalization)
  Sender: FDA-Public Use
  Company Number: MA-SUN PHARMACEUTICAL INDUSTRIES LTD-2018RR-170535

PATIENT
  Age: 10 Year
  Sex: Male

DRUGS (2)
  1. IVY EXTRACT [Interacting]
     Active Substance: IVY EXTRACT
     Indication: INFLUENZA LIKE ILLNESS
     Route: 065
  2. IBUPROFEN. [Suspect]
     Active Substance: IBUPROFEN
     Indication: INFLUENZA LIKE ILLNESS
     Route: 065

REACTIONS (2)
  - Drug interaction [Recovering/Resolving]
  - Erythema multiforme [Recovering/Resolving]
